FAERS Safety Report 8319646-3 (Version None)
Quarter: 2012Q2

REPORT INFORMATION
  Report Type: 
  Country: None (occurrence: None)
  Receive Date: 20120427
  Receipt Date: 20120425
  Transmission Date: 20120825
  Serious: Yes (Life-Threatening, Hospitalization)
  Sender: FDA-Public Use
  Company Number: PHHY2012BR027554

PATIENT
  Age: 80 Year
  Sex: Female

DRUGS (6)
  1. SIMVASTATIN [Concomitant]
     Indication: BLOOD CHOLESTEROL
     Route: 048
  2. RASILEZ [Suspect]
     Indication: ATRIAL FIBRILLATION
     Dosage: 1 DF, UNK
     Dates: start: 20110101, end: 20120317
  3. WARFARIN SODIUM [Concomitant]
     Indication: ANTICOAGULANT THERAPY
     Route: 048
  4. FLUTICASONE PROPIONATE/SALMETEROL [Concomitant]
     Indication: ASTHMA
     Route: 048
  5. CARVEDILOL [Concomitant]
     Indication: BLOOD PRESSURE
     Dosage: 6.25 MG, QD
  6. PRESSAT [Concomitant]

REACTIONS (6)
  - COUGH [None]
  - BRONCHOPNEUMONIA [None]
  - ASTHENIA [None]
  - FEELING ABNORMAL [None]
  - CATATONIA [None]
  - HEART RATE DECREASED [None]
